FAERS Safety Report 20638293 (Version 1)
Quarter: 2022Q1

REPORT INFORMATION
  Report Type: Report from Study
  Country: BR (occurrence: BR)
  Receive Date: 20220325
  Receipt Date: 20220325
  Transmission Date: 20220424
  Serious: Yes (Hospitalization, Other)
  Sender: FDA-Public Use
  Company Number: BR-TAKEDA-BR201717572

PATIENT
  Age: 28 Year
  Sex: Male
  Weight: 99 kg

DRUGS (6)
  1. ADVATE [Suspect]
     Active Substance: ANTIHEMOPHILIC FACTOR, HUMAN RECOMBINANT
     Indication: Factor VIII deficiency
     Dosage: UNK UNK, 3/WEEK
     Route: 042
     Dates: start: 20170111
  2. ADVATE [Suspect]
     Active Substance: ANTIHEMOPHILIC FACTOR, HUMAN RECOMBINANT
     Indication: Factor VIII deficiency
     Dosage: UNK UNK, 3/WEEK
     Route: 042
     Dates: start: 20170111
  3. ADVATE [Suspect]
     Active Substance: ANTIHEMOPHILIC FACTOR, HUMAN RECOMBINANT
     Indication: Factor VIII deficiency
     Dosage: UNK UNK, 3/WEEK
     Route: 042
     Dates: start: 20170111
  4. ADVATE [Suspect]
     Active Substance: ANTIHEMOPHILIC FACTOR, HUMAN RECOMBINANT
     Indication: Prophylaxis
     Dosage: 3000 (UNITS NOT REPORTED), 2X/DAY:BID
     Route: 042
     Dates: start: 20170113, end: 20170117
  5. ADVATE [Suspect]
     Active Substance: ANTIHEMOPHILIC FACTOR, HUMAN RECOMBINANT
     Indication: Prophylaxis
     Dosage: 3000 (UNITS NOT REPORTED), 2X/DAY:BID
     Route: 042
     Dates: start: 20170113, end: 20170117
  6. ADVATE [Suspect]
     Active Substance: ANTIHEMOPHILIC FACTOR, HUMAN RECOMBINANT
     Indication: Prophylaxis
     Dosage: 3000 (UNITS NOT REPORTED), 2X/DAY:BID
     Route: 042
     Dates: start: 20170113, end: 20170117

REACTIONS (3)
  - Haemophilic arthropathy [Recovered/Resolved]
  - Synovitis [Unknown]
  - Pain [Unknown]

NARRATIVE: CASE EVENT DATE: 20170113
